FAERS Safety Report 5715955-2 (Version None)
Quarter: 2008Q2

REPORT INFORMATION
  Report Type: 
  Country: None (occurrence: None)
  Receive Date: 20080423
  Receipt Date: 20080423
  Transmission Date: 20081010
  Serious: Yes (Death)
  Sender: FDA-Public Use
  Company Number: None

PATIENT
  Age: 41 Year
  Sex: Male
  Weight: 85.7298 kg

DRUGS (1)
  1. CHANTIX [Suspect]
     Indication: SMOKING CESSATION THERAPY
     Dosage: INITIAL DOSE WAS 0.5MG 1 DAYS1-3/2DAYS4-7 PO; 1 MG 2X'S A DAY PO
     Route: 048

REACTIONS (1)
  - MYOCARDIAL INFARCTION [None]
